FAERS Safety Report 9684650 (Version 2)
Quarter: 2013Q4

REPORT INFORMATION
  Report Type: Report from Study
  Country: JP (occurrence: JP)
  Receive Date: 20131112
  Receipt Date: 20131129
  Transmission Date: 20140711
  Serious: Yes (Hospitalization)
  Sender: FDA-Public Use
  Company Number: JP-TAKEDA-2013TJP002647

PATIENT
  Age: 63 Year
  Sex: Male
  Weight: 74 kg

DRUGS (11)
  1. PIOGLITAZONE, METFORMIN [Suspect]
     Indication: TYPE 2 DIABETES MELLITUS
     Dosage: 1 DF, QD
     Route: 048
     Dates: start: 20120728, end: 20130725
  2. CALBLOCK [Concomitant]
     Dosage: 16 MG, QD
     Route: 048
     Dates: end: 20130801
  3. CALBLOCK [Concomitant]
     Route: 048
     Dates: end: 20130801
  4. PRAVASTATIN NA [Concomitant]
     Dosage: 10 MG, QD
     Route: 048
     Dates: end: 20130801
  5. PRAVASTATIN NA [Concomitant]
     Route: 048
     Dates: end: 20130801
  6. ZETIA [Concomitant]
     Dosage: 10 MG, QD
     Route: 048
     Dates: end: 20130801
  7. ZETIA [Concomitant]
     Route: 048
     Dates: end: 20130801
  8. ALLOZYM [Concomitant]
     Dosage: 100 MG, 1DAYS
     Route: 048
     Dates: end: 20130801
  9. ALLOZYM [Concomitant]
     Route: 048
     Dates: end: 20130801
  10. MICOMBI AP [Concomitant]
     Route: 048
     Dates: end: 20130801
  11. OMEPRAZOLE [Concomitant]
     Route: 048
     Dates: end: 20130801

REACTIONS (1)
  - Heat illness [Recovered/Resolved]
